FAERS Safety Report 21069481 (Version 2)
Quarter: 2022Q3

REPORT INFORMATION
  Report Type: Spontaneous
  Country: CO (occurrence: CO)
  Receive Date: 20220712
  Receipt Date: 20220712
  Transmission Date: 20221027
  Serious: Yes (Hospitalization, Other)
  Sender: FDA-Public Use
  Company Number: CO-PFIZER INC-PV202200012337

PATIENT
  Age: 59 Year
  Sex: Female

DRUGS (2)
  1. GEMCITABINE HYDROCHLORIDE [Suspect]
     Active Substance: GEMCITABINE HYDROCHLORIDE
     Indication: Adenocarcinoma pancreas
     Dosage: ON DAY 1, 8 AND 15 AND EVERY 28 DAYS
     Dates: start: 2017, end: 202009
  2. PACLITAXEL [Concomitant]
     Active Substance: PACLITAXEL
     Indication: Adenocarcinoma pancreas
     Dosage: ON DAY 1, 8 AND 15 AND EVERY 28 DAYS
     Dates: start: 2017, end: 202009

REACTIONS (9)
  - Thrombotic microangiopathy [Unknown]
  - Renal impairment [Unknown]
  - Respiratory distress [Unknown]
  - Oedema [Unknown]
  - Thrombocytopenia [Unknown]
  - Pancytopenia [Unknown]
  - Blood creatinine increased [Unknown]
  - Anaemia [Unknown]
  - Hypertension [Unknown]

NARRATIVE: CASE EVENT DATE: 20200201
